FAERS Safety Report 8515403-3 (Version None)
Quarter: 2012Q3

REPORT INFORMATION
  Report Type: 
  Country: None (occurrence: None)
  Receive Date: 20120705
  Receipt Date: 20120625
  Transmission Date: 20120928
  Serious: Yes (Life-Threatening, Hospitalization, Other)
  Sender: FDA-Public Use
  Company Number: AUR-APL-2012-02833

PATIENT
  Age: 66 Year
  Sex: Female
  Weight: 58 kg

DRUGS (3)
  1. SUTENT [Suspect]
     Indication: PANCREATIC NEUROENDOCRINE TUMOUR
     Dosage: 25 MG (25 MG,1 IN 1 D),ORAL, 12.5 MG (12.5 MG, 1  IN 1 D),ORAL
     Route: 048
     Dates: start: 20100901
  2. SUTENT [Suspect]
     Indication: PANCREATIC NEUROENDOCRINE TUMOUR
     Dosage: 25 MG (25 MG,1 IN 1 D),ORAL, 12.5 MG (12.5 MG, 1  IN 1 D),ORAL
     Route: 048
     Dates: end: 20111008
  3. METFFORMIN HYDROCHLORIDE [Suspect]
     Indication: DIABETES MELLITUS
     Dosage: ORAL
     Route: 048
     Dates: end: 20111008

REACTIONS (22)
  - DRUG INTOLERANCE [None]
  - OVARIAN MASS [None]
  - LACTIC ACIDOSIS [None]
  - OVARIAN CYST [None]
  - ABDOMINAL HERNIA [None]
  - RENAL FAILURE ACUTE [None]
  - BRADYCARDIA [None]
  - MULTI-ORGAN FAILURE [None]
  - CYTOLYTIC HEPATITIS [None]
  - ESCHERICHIA URINARY TRACT INFECTION [None]
  - ABDOMINAL PAIN [None]
  - SCIATICA [None]
  - HEPATIC FAILURE [None]
  - CARDIOGENIC SHOCK [None]
  - HAEMODIALYSIS [None]
  - CARDIAC FAILURE [None]
  - BLOOD CHROMOGRANIN A INCREASED [None]
  - FATIGUE [None]
  - LEUKOCYTOSIS [None]
  - HYPERKALAEMIA [None]
  - TACHYCARDIA [None]
  - COUGH [None]
